FAERS Safety Report 6398493-6 (Version None)
Quarter: 2009Q4

REPORT INFORMATION
  Report Type: 
  Country: None (occurrence: None)
  Receive Date: 20091013
  Receipt Date: 20091008
  Transmission Date: 20100525
  Serious: Yes (Other)
  Sender: FDA-Public Use
  Company Number: B0597456A

PATIENT
  Age: 37 Year
  Sex: Male

DRUGS (1)
  1. LAMICTAL [Suspect]
     Indication: EPILEPSY
     Route: 048
     Dates: start: 20070101

REACTIONS (3)
  - EUPHORIC MOOD [None]
  - INTRACRANIAL PRESSURE INCREASED [None]
  - TINNITUS [None]
